FAERS Safety Report 7259580-3 (Version None)
Quarter: 2011Q1

REPORT INFORMATION
  Report Type: 
  Country: None (occurrence: None)
  Receive Date: 20110130
  Receipt Date: 20101213
  Transmission Date: 20110831
  Serious: Yes (Other)
  Sender: FDA-Public Use
  Company Number: US-ABBOTT-09P-163-0586221-00

PATIENT
  Sex: Male
  Weight: 66.738 kg

DRUGS (3)
  1. HUMIRA [Suspect]
     Dates: start: 20100501
  2. HUMIRA [Suspect]
     Indication: CROHN'S DISEASE
     Dates: start: 20080201, end: 20100501
  3. PENTASA [Concomitant]
     Indication: CROHN'S DISEASE
     Route: 048

REACTIONS (7)
  - LIGAMENT INJURY [None]
  - DEVICE MALFUNCTION [None]
  - LIGAMENT RUPTURE [None]
  - INJECTION SITE ANAESTHESIA [None]
  - DRUG INEFFECTIVE [None]
  - INJECTION SITE PAIN [None]
  - INJECTION SITE COLDNESS [None]
